FAERS Safety Report 6689423-8 (Version None)
Quarter: 2010Q2

REPORT INFORMATION
  Report Type: 
  Country: None (occurrence: None)
  Receive Date: 20100420
  Receipt Date: 20100414
  Transmission Date: 20101027
  Serious: Yes (Life-Threatening, Hospitalization)
  Sender: FDA-Public Use
  Company Number: IT-BRISTOL-MYERS SQUIBB COMPANY-15068349

PATIENT
  Age: 55 Year
  Sex: Male

DRUGS (4)
  1. ERBITUX [Suspect]
     Indication: HEAD AND NECK CANCER
     Route: 042
     Dates: start: 20090915, end: 20100222
  2. DOCETAXEL [Concomitant]
     Indication: HEAD AND NECK CANCER
  3. CISPLATIN [Concomitant]
     Indication: HEAD AND NECK CANCER
  4. FLUOROURACIL [Concomitant]
     Indication: HEAD AND NECK CANCER

REACTIONS (1)
  - BRONCHOPULMONARY ASPERGILLOSIS [None]
